FAERS Safety Report 8291463-2 (Version None)
Quarter: 2012Q2

REPORT INFORMATION
  Report Type: 
  Country: None (occurrence: None)
  Receive Date: 20120417
  Receipt Date: 20120411
  Transmission Date: 20120825
  Serious: Yes (Other)
  Sender: FDA-Public Use
  Company Number: US-PFIZER INC-2012090893

PATIENT
  Sex: Male

DRUGS (1)
  1. XYNTHA [Suspect]
     Indication: HAEMOPHILIA
     Dosage: 2000 IU, AS NEEDED
     Dates: start: 20080101

REACTIONS (1)
  - HIP FRACTURE [None]
